FAERS Safety Report 6431570-X (Version None)
Quarter: 2009Q4

REPORT INFORMATION
  Report Type: 
  Country: None (occurrence: None)
  Receive Date: 20091103
  Receipt Date: 20091029
  Transmission Date: 20100525
  Serious: Yes (Life-Threatening, Hospitalization)
  Sender: FDA-Public Use
  Company Number: 2009SP015549

PATIENT
  Age: 47 Year
  Sex: Female

DRUGS (1)
  1. PEG-INTRON [Suspect]
     Indication: MALIGNANT MELANOMA
     Dosage: 246 MCG;QW;SC
     Route: 058
     Dates: start: 20090302, end: 20090518

REACTIONS (1)
  - CARDIAC FAILURE CONGESTIVE [None]
